FAERS Safety Report 4951710-9 (Version None)
Quarter: 2006Q1

REPORT INFORMATION
  Report Type: 
  Country: None (occurrence: None)
  Receive Date: 20060323
  Receipt Date: 20060118
  Transmission Date: 20060701
  Serious: Yes (Hospitalization)
  Sender: FDA-Public Use
  Company Number: US-GLAXOSMITHKLINE-A0589890A

PATIENT
  Age: 51 Year
  Sex: Female

DRUGS (4)
  1. TAGAMET [Suspect]
     Indication: GASTRIC ULCER
     Route: 048
     Dates: start: 19820101
  2. THORAZINE [Suspect]
     Indication: DYSTONIA
     Route: 054
     Dates: start: 19820101
  3. GLYBURIDE [Concomitant]
  4. KLONOPIN [Concomitant]

REACTIONS (6)
  - CHOKING [None]
  - DYSKINESIA [None]
  - DYSTONIA [None]
  - HEAD DEFORMITY [None]
  - ILL-DEFINED DISORDER [None]
  - NERVOUSNESS [None]
